FAERS Safety Report 14404208 (Version 2)
Quarter: 2018Q1

REPORT INFORMATION
  Report Type: Spontaneous
  Country: JP (occurrence: JP)
  Receive Date: 20180117
  Receipt Date: 20180209
  Transmission Date: 20180509
  Serious: Yes (Death, Hospitalization, Other)
  Sender: FDA-Public Use
  Company Number: JP-SHIRE-JP201801421

PATIENT

DRUGS (11)
  1. KIKLIN [Concomitant]
     Active Substance: BIXALOMER
     Indication: HYPERPHOSPHATAEMIA
  2. SIGMART [Concomitant]
     Active Substance: NICORANDIL
     Indication: ANGINA PECTORIS
  3. NOVORAPID [Concomitant]
     Active Substance: INSULIN ASPART
     Indication: DIABETES MELLITUS
  4. AZOSEMIDE [Concomitant]
     Active Substance: AZOSEMIDE
     Indication: RENAL FAILURE
  5. FUROSEMIDE. [Concomitant]
     Active Substance: FUROSEMIDE
     Indication: RENAL FAILURE
  6. AMLODIPINE [Concomitant]
     Active Substance: AMLODIPINE BESYLATE
     Indication: HYPERTENSION
  7. LANSOPRAZOLE. [Concomitant]
     Active Substance: LANSOPRAZOLE
     Indication: GASTROOESOPHAGEAL REFLUX DISEASE
  8. FOSRENOL [Suspect]
     Active Substance: LANTHANUM CARBONATE
     Dosage: 2000 MG, 1X/DAY:QD
     Route: 048
     Dates: start: 20171011, end: 20171121
  9. FOSRENOL [Suspect]
     Active Substance: LANTHANUM CARBONATE
     Indication: HYPERPHOSPHATAEMIA
     Dosage: 1500 MG, 1X/DAY:QD
     Route: 048
     Dates: start: 20170524, end: 20171010
  10. FOSRENOL [Suspect]
     Active Substance: LANTHANUM CARBONATE
     Dosage: 2250 MG, 1X/DAY:QD
     Route: 048
     Dates: start: 20171122
  11. MICARDIS [Concomitant]
     Active Substance: TELMISARTAN
     Indication: HYPERTENSION

REACTIONS (10)
  - Cardiac failure acute [Fatal]
  - Respiratory arrest [Unknown]
  - Atrial fibrillation [Unknown]
  - Weight increased [Unknown]
  - Blood pressure decreased [Unknown]
  - Dizziness [Unknown]
  - Pulmonary oedema [Unknown]
  - Depressed level of consciousness [None]
  - Seizure [Unknown]
  - Pleural effusion [Unknown]

NARRATIVE: CASE EVENT DATE: 201711
